FAERS Safety Report 7436260-2 (Version None)
Quarter: 2011Q2

REPORT INFORMATION
  Report Type: 
  Country: None (occurrence: None)
  Receive Date: 20110425
  Receipt Date: 20110411
  Transmission Date: 20111010
  Serious: Yes (Hospitalization)
  Sender: FDA-Public Use
  Company Number: DK-MYLANLABS-2011S1007726

PATIENT
  Age: 65 Year
  Sex: Male

DRUGS (4)
  1. BENDROFLUMETHIAZIDE [Suspect]
     Route: 065
  2. FUROSEMIDE [Suspect]
     Route: 048
  3. SPIRONOLACTONE [Suspect]
     Route: 065
  4. METOPROLOL [Concomitant]
     Route: 065

REACTIONS (1)
  - RENAL FAILURE ACUTE [None]
